FAERS Safety Report 23192251 (Version 1)
Quarter: 2023Q4

REPORT INFORMATION
  Report Type: Report from Study
  Country: IT (occurrence: IT)
  Receive Date: 20231116
  Receipt Date: 20231116
  Transmission Date: 20240110
  Serious: Yes (Other)
  Sender: FDA-Public Use
  Company Number: None

PATIENT
  Age: 37 Year
  Sex: Male

DRUGS (2)
  1. CLOZAPINE [Suspect]
     Active Substance: CLOZAPINE
     Indication: Psychotic disorder
     Dosage: 250 MILLIGRAM, QD (1 TABLET IN THE MORNING OF 100 MG AND 1 TABLET IN THE EVENING OF 150 MG)
     Route: 048
  2. CLOZAPINE [Suspect]
     Active Substance: CLOZAPINE
     Dosage: 300 MILLIGRAM, QD ((1 TABLET IN THE MORNING OF 100 MG AND 2 TABLET IN THE EVENING OF 100 MG)
     Route: 048

REACTIONS (2)
  - Hallucinations, mixed [Recovering/Resolving]
  - Malaise [Recovering/Resolving]

NARRATIVE: CASE EVENT DATE: 20231029
